FAERS Safety Report 9012496 (Version 1)
Quarter: 2013Q1

REPORT INFORMATION
  Report Type: Spontaneous
  Country: US (occurrence: US)
  Receive Date: 20130114
  Receipt Date: 20130114
  Transmission Date: 20140127
  Serious: Yes (Hospitalization)
  Sender: FDA-Public Use
  Company Number: US-ROXANE LABORATORIES, INC.-2013-RO-00041RO

PATIENT
  Age: 42 Year
  Sex: Male

DRUGS (11)
  1. LITHIUM CARBONATE [Suspect]
     Indication: COGNITIVE DISORDER
     Dosage: 1200 MG
     Dates: start: 1995, end: 2007
  2. LITHIUM CARBONATE [Suspect]
     Indication: AFFECT LABILITY
  3. METHIMAZOLE [Suspect]
     Indication: GOITRE
     Dosage: 12.5 MG
     Dates: start: 2011
  4. PREVACID [Concomitant]
     Dosage: 30 MG
  5. PERCOCET [Concomitant]
  6. SEROQUEL [Concomitant]
     Dosage: 75 MG
  7. LORAZEPAM [Concomitant]
     Dosage: 2 MG
  8. DILANTIN [Concomitant]
     Dosage: 400 MG
  9. MIRAPEX [Concomitant]
     Dosage: 0.375 MG
  10. ZOLOFT [Concomitant]
     Dosage: 200 MG
  11. COLACE [Concomitant]

REACTIONS (5)
  - Goitre [Recovered/Resolved]
  - Upper airway obstruction [Unknown]
  - Respiratory distress [Unknown]
  - Hyperthyroidism [Unknown]
  - Asphyxia [Unknown]
